FAERS Safety Report 18898032 (Version 1)
Quarter: 2021Q1

REPORT INFORMATION
  Report Type: Spontaneous
  Country: US (occurrence: US)
  Receive Date: 20210212
  Receipt Date: 20210212
  Transmission Date: 20210420
  Serious: No
  Sender: FDA-Public Use
  Company Number: None

PATIENT
  Age: 85 Year
  Sex: Female

DRUGS (1)
  1. OPSUMIT [Suspect]
     Active Substance: MACITENTAN
     Indication: PULMONARY ARTERIAL HYPERTENSION
     Route: 048
     Dates: start: 20151020

REACTIONS (4)
  - Haemoglobin decreased [None]
  - Dyspnoea [None]
  - Fatigue [None]
  - Full blood count decreased [None]

NARRATIVE: CASE EVENT DATE: 20210209
